FAERS Safety Report 7047428-1 (Version None)
Quarter: 2010Q4

REPORT INFORMATION
  Report Type: 
  Country: None (occurrence: None)
  Receive Date: 20101015
  Receipt Date: 20101007
  Transmission Date: 20110411
  Serious: Yes (Other)
  Sender: FDA-Public Use
  Company Number: US-JNJFOC-20101002669

PATIENT
  Sex: Female
  Weight: 50.8 kg

DRUGS (3)
  1. ORTHO EVRA [Suspect]
     Indication: INAPPROPRIATE SCHEDULE OF DRUG ADMINISTRATION
     Route: 062
  2. ORTHO EVRA [Suspect]
     Indication: CONTRACEPTION
     Route: 062
  3. VITAMIN TAB [Concomitant]
     Indication: NUTRITIONAL SUPPORT
     Route: 048

REACTIONS (7)
  - COELIAC DISEASE [None]
  - INAPPROPRIATE SCHEDULE OF DRUG ADMINISTRATION [None]
  - MENOPAUSE [None]
  - OFF LABEL USE [None]
  - TREATMENT NONCOMPLIANCE [None]
  - UTERINE LEIOMYOMA [None]
  - VAGINAL HAEMORRHAGE [None]
